FAERS Safety Report 20658467 (Version 2)
Quarter: 2022Q2

REPORT INFORMATION
  Report Type: Spontaneous
  Country: PL (occurrence: PL)
  Receive Date: 20220331
  Receipt Date: 20220418
  Transmission Date: 20220720
  Serious: Yes (Hospitalization, Other)
  Sender: FDA-Public Use
  Company Number: PL-GLAXOSMITHKLINE-PLCH2022EME009716

PATIENT
  Age: 70 Year
  Sex: Male

DRUGS (13)
  1. CELECOXIB [Interacting]
     Active Substance: CELECOXIB
     Dosage: UNK
  2. NIMESULIDE [Interacting]
     Active Substance: NIMESULIDE
     Dosage: IN THE FORM OF TWO DIFFERENT PREPARATIONS
  3. DICLOFENAC [Interacting]
     Active Substance: DICLOFENAC
     Dosage: IN THE FORM OF TWO DIFFERENT PREPARATIONS
  4. INDAPAMIDE [Interacting]
     Active Substance: INDAPAMIDE
     Dosage: 1 DF, 1X/DAY
  5. KETOPROFEN [Interacting]
     Active Substance: KETOPROFEN
     Dosage: IN THE FORM OF TWO DIFFERENT PREPARATIONS
  6. ASPIRIN [Interacting]
     Active Substance: ASPIRIN
     Dosage: 1 DF, 1X/DAY
  7. DULOXETINE [Interacting]
     Active Substance: DULOXETINE
     Indication: Spinal pain
     Dosage: 1 DF, 1X/DAY
  8. GABAPENTIN [Concomitant]
     Active Substance: GABAPENTIN
     Dosage: 1 DF, 2X/DAY
  9. NEBIVOLOL [Concomitant]
     Active Substance: NEBIVOLOL
     Dosage: 1 DF, 1X/DAY
  10. ATORVASTATIN [Concomitant]
     Active Substance: ATORVASTATIN
     Dosage: 1 DF, 1X/DAY
  11. METFORMIN [Concomitant]
     Active Substance: METFORMIN HYDROCHLORIDE
     Indication: Type 2 diabetes mellitus
     Dosage: 1 DF, 3X/DAY (AT MEALS)
  12. PANTOPRAZOLE [Concomitant]
     Active Substance: PANTOPRAZOLE
     Dosage: 1 DF, 1X/DAY
  13. VALSARTAN [Concomitant]
     Active Substance: VALSARTAN
     Dosage: 1 DF, 1X/DAY

REACTIONS (3)
  - Urinary retention [Recovered/Resolved]
  - Drug interaction [Recovered/Resolved]
  - Hyponatraemia [Recovered/Resolved]
